FAERS Safety Report 18662321 (Version 1)
Quarter: 2020Q4

REPORT INFORMATION
  Report Type: Spontaneous
  Country: US (occurrence: US)
  Receive Date: 20201224
  Receipt Date: 20201224
  Transmission Date: 20210114
  Serious: Yes (Other)
  Sender: FDA-Public Use
  Company Number: US-ALLERGAN-2049429US

PATIENT
  Sex: Female
  Weight: 65.8 kg

DRUGS (8)
  1. MACITENTAN [Concomitant]
     Active Substance: MACITENTAN
  2. NORCO [Suspect]
     Active Substance: ACETAMINOPHEN\HYDROCODONE BITARTRATE
     Indication: PRODUCT USED FOR UNKNOWN INDICATION
  3. TREPROSTINIL DIOLAMIN [Suspect]
     Active Substance: TREPROSTINIL DIOLAMINE
     Dosage: UNK
     Route: 048
  4. TREPROSTINIL DIOLAMIN [Suspect]
     Active Substance: TREPROSTINIL DIOLAMINE
     Dosage: 3.25 MG, Q8HR
     Route: 048
  5. TREPROSTINIL DIOLAMIN [Suspect]
     Active Substance: TREPROSTINIL DIOLAMINE
     Dosage: 0.125 MG
     Route: 048
     Dates: start: 20190926
  6. SILDENAFIL CITRATE. [Concomitant]
     Active Substance: SILDENAFIL CITRATE
  7. TREPROSTINIL DIOLAMIN [Suspect]
     Active Substance: TREPROSTINIL DIOLAMINE
     Indication: PULMONARY ARTERIAL HYPERTENSION
     Dosage: UNK
     Route: 048
  8. TREPROSTINIL DIOLAMIN [Suspect]
     Active Substance: TREPROSTINIL DIOLAMINE
     Dosage: 3.125 MG, Q8HR
     Route: 048

REACTIONS (13)
  - Stress [Unknown]
  - Disturbance in attention [Unknown]
  - Diarrhoea [Unknown]
  - Ear discomfort [Unknown]
  - Constipation [Unknown]
  - Weight increased [Unknown]
  - Pneumonia [Unknown]
  - Abdominal distension [Unknown]
  - Fibrosis [Unknown]
  - Hypertension [Unknown]
  - Adverse event [Unknown]
  - Feeling abnormal [Unknown]
  - Abdominal discomfort [Unknown]
